FAERS Safety Report 24122348 (Version 4)
Quarter: 2025Q1

REPORT INFORMATION
  Report Type: Spontaneous
  Country: IT (occurrence: IT)
  Receive Date: 20240723
  Receipt Date: 20250128
  Transmission Date: 20250409
  Serious: Yes (Disabling, Other)
  Sender: CELLTRION
  Company Number: IT-CELLTRION INC.-2024IT017557

PATIENT

DRUGS (5)
  1. INFLIXIMAB [Suspect]
     Active Substance: INFLIXIMAB
     Indication: Cogan^s syndrome
     Route: 065
  2. INFLIXIMAB [Suspect]
     Active Substance: INFLIXIMAB
     Route: 065
  3. METHOTREXATE [Concomitant]
     Active Substance: METHOTREXATE
     Indication: Cogan^s syndrome
     Route: 065
  4. METHOTREXATE [Concomitant]
     Active Substance: METHOTREXATE
     Dosage: 15 MG, WEEKLY
     Route: 065
  5. CYCLOSPORINE [Concomitant]
     Active Substance: CYCLOSPORINE
     Indication: Product used for unknown indication
     Route: 065

REACTIONS (5)
  - Condition aggravated [Recovering/Resolving]
  - Deafness neurosensory [Recovering/Resolving]
  - Vulvovaginal candidiasis [Unknown]
  - Drug effective for unapproved indication [Unknown]
  - Off label use [Unknown]
